FAERS Safety Report 8483473-7 (Version None)
Quarter: 2012Q3

REPORT INFORMATION
  Report Type: 
  Country: None (occurrence: None)
  Receive Date: 20120702
  Receipt Date: 20120620
  Transmission Date: 20120928
  Serious: Yes (Hospitalization, Other)
  Sender: FDA-Public Use
  Company Number: GR-ELI_LILLY_AND_COMPANY-GR201206002720

PATIENT
  Age: 21 Year
  Sex: Male

DRUGS (6)
  1. LORAZEPAM [Concomitant]
     Indication: SCHIZOPHRENIA
     Route: 048
  2. ZYPREXA [Suspect]
     Indication: SCHIZOPHRENIA
     Dosage: 20 MG, QD
     Route: 048
     Dates: end: 20120606
  3. XANAX [Concomitant]
     Indication: SCHIZOPHRENIA
     Route: 048
  4. MARIJUANA [Concomitant]
  5. OLANZAPINE [Suspect]
     Indication: SCHIZOPHRENIA
     Dosage: 405 MG, 2/M
     Route: 030
     Dates: start: 20120401, end: 20120606
  6. OLANZAPINE [Suspect]
     Dosage: 405 MG, UNKNOWN
     Dates: start: 20120615

REACTIONS (5)
  - OVERDOSE [None]
  - EXTRAPYRAMIDAL DISORDER [None]
  - PYREXIA [None]
  - JOINT ANKYLOSIS [None]
  - BLOOD CREATINE PHOSPHOKINASE INCREASED [None]
